FAERS Safety Report 6827750-1 (Version None)
Quarter: 2010Q3

REPORT INFORMATION
  Report Type: 
  Country: None (occurrence: None)
  Receive Date: 20100709
  Receipt Date: 20070124
  Transmission Date: 20110219
  Serious: No
  Sender: FDA-Public Use
  Company Number: US-PFIZER INC-2007007312

PATIENT
  Sex: Male
  Weight: 66.22 kg

DRUGS (6)
  1. CHANTIX [Suspect]
     Indication: SMOKING CESSATION THERAPY
     Dates: start: 20070124, end: 20070124
  2. PREVACID [Concomitant]
  3. MULTI-VITAMINS [Concomitant]
  4. LUNESTA [Concomitant]
     Indication: SLEEP DISORDER
  5. MEGESTROL ACETATE [Concomitant]
  6. IRON [Concomitant]

REACTIONS (2)
  - HEADACHE [None]
  - PSYCHOMOTOR HYPERACTIVITY [None]
